FAERS Safety Report 18558978 (Version 1)
Quarter: 2020Q4

REPORT INFORMATION
  Report Type: Spontaneous
  Country: DE (occurrence: DE)
  Receive Date: 20201130
  Receipt Date: 20201130
  Transmission Date: 20210114
  Serious: Yes (Other)
  Sender: FDA-Public Use
  Company Number: DE-PFIZER INC-2020462554

PATIENT
  Age: 22 Month

DRUGS (3)
  1. URSODIOL. [Concomitant]
     Active Substance: URSODIOL
     Dosage: 300 MG/M2 DAILY
     Route: 048
  2. TRANEXAMIC ACID. [Suspect]
     Active Substance: TRANEXAMIC ACID
     Indication: HAEMORRHAGE
     Dosage: 15 MG/KG, ADMINISITERED IN TWO BOLUSES WITHIN 2 H
     Route: 040
  3. URSODIOL. [Concomitant]
     Active Substance: URSODIOL
     Dosage: 600 MG/M2, DAILY
     Route: 048

REACTIONS (1)
  - Venoocclusive liver disease [Recovered/Resolved]
